FAERS Safety Report 5386559-9 (Version None)
Quarter: 2007Q3

REPORT INFORMATION
  Report Type: 
  Country: None (occurrence: None)
  Receive Date: 20070713
  Receipt Date: 20070709
  Transmission Date: 20080115
  Serious: Yes (Hospitalization)
  Sender: FDA-Public Use
  Company Number: A0662523A

PATIENT
  Sex: Male

DRUGS (17)
  1. COREG [Suspect]
     Dosage: 25MG TWICE PER DAY
     Route: 048
     Dates: start: 20000101
  2. DEMADEX [Concomitant]
  3. SPIRONOLACTONE [Concomitant]
  4. WELLBUTRIN [Concomitant]
  5. STRATTERA [Concomitant]
  6. POTASSIUM CHLORIDE [Concomitant]
  7. CRESTOR [Concomitant]
  8. DIGOXIN [Concomitant]
  9. NEURONTIN [Concomitant]
  10. PROTONIX [Concomitant]
  11. BUTALBITAL ACETAMINOPHEN AND CAFFEINE [Concomitant]
  12. VICODIN [Concomitant]
  13. LISINOPRIL [Concomitant]
  14. ALBUTEROL [Concomitant]
  15. TOPAMAX [Concomitant]
  16. UNSPECIFIED MEDICATION [Concomitant]
  17. VIAGRA [Concomitant]

REACTIONS (4)
  - ABDOMINAL PAIN UPPER [None]
  - CHEST PAIN [None]
  - DYSPNOEA [None]
  - INFLUENZA LIKE ILLNESS [None]
